FAERS Safety Report 9550594 (Version 1)
Quarter: 2013Q3

REPORT INFORMATION
  Report Type: Spontaneous
  Country: US (occurrence: US)
  Receive Date: 20130924
  Receipt Date: 20130924
  Transmission Date: 20140515
  Serious: No
  Sender: FDA-Public Use
  Company Number: US-SANOFI-AVENTIS-2013SA038009

PATIENT
  Age: 39 Year
  Sex: Female
  Weight: 59 kg

DRUGS (6)
  1. AUBAGIO [Suspect]
     Indication: MULTIPLE SCLEROSIS
     Route: 048
     Dates: start: 20130215, end: 20130320
  2. ORAL CONTRACEPTIVE NOS [Concomitant]
  3. CELEXA [Concomitant]
     Indication: DEPRESSION
  4. ALL OTHER THERAPEUTIC PRODUCTS [Concomitant]
  5. IMMUNOGLOBULIN [Concomitant]
  6. ALL OTHER THERAPEUTIC PRODUCTS [Concomitant]

REACTIONS (16)
  - Affect lability [Recovered/Resolved]
  - Euphoric mood [Unknown]
  - Menstruation irregular [Not Recovered/Not Resolved]
  - Menorrhagia [Not Recovered/Not Resolved]
  - Musculoskeletal pain [Recovered/Resolved]
  - Neck pain [Recovered/Resolved]
  - Myalgia [Unknown]
  - Anxiety [Recovered/Resolved]
  - Nervousness [Recovered/Resolved]
  - Muscle tightness [Recovered/Resolved]
  - Crying [Recovered/Resolved]
  - Laboratory test abnormal [Unknown]
  - Hypoaesthesia [Not Recovered/Not Resolved]
  - Hepatic enzyme abnormal [Not Recovered/Not Resolved]
  - Drug level increased [Unknown]
  - Alopecia [Recovered/Resolved]
